FAERS Safety Report 8099759-4 (Version None)
Quarter: 2012Q1

REPORT INFORMATION
  Report Type: 
  Country: None (occurrence: None)
  Receive Date: 20120129
  Receipt Date: 20110902
  Transmission Date: 20120608
  Serious: No
  Sender: FDA-Public Use
  Company Number: US-ABBOTT-11P-163-0852092-00

PATIENT
  Sex: Male
  Weight: 74.91 kg

DRUGS (4)
  1. LEXAPRO [Concomitant]
     Indication: DEPRESSION
  2. HUMIRA [Suspect]
     Indication: CROHN'S DISEASE
     Dates: start: 20110101, end: 20110701
  3. LAMICTAL [Concomitant]
     Indication: CONVULSION
  4. DILANTIN [Concomitant]
     Indication: CONVULSION

REACTIONS (4)
  - FOLLICULITIS [None]
  - RASH [None]
  - PYREXIA [None]
  - CROHN'S DISEASE [None]
